FAERS Safety Report 10045798 (Version 2)
Quarter: 2014Q2

REPORT INFORMATION
  Report Type: Spontaneous
  Country: US (occurrence: US)
  Receive Date: 20140328
  Receipt Date: 20140422
  Transmission Date: 20141212
  Serious: No
  Sender: FDA-Public Use
  Company Number: US-009507513-1403USA012350

PATIENT
  Sex: Female
  Weight: 77.98 kg

DRUGS (6)
  1. OXYTROL FOR WOMEN [Suspect]
     Indication: POLLAKIURIA
     Dosage: 1 DF, Q4D
     Route: 062
     Dates: start: 20140301
  2. OXYTROL FOR WOMEN [Suspect]
     Indication: INCONTINENCE
  3. PRAMIPEXOLE [Concomitant]
     Indication: RESTLESS LEGS SYNDROME
     Dosage: UNK, UNKNOWN
  4. ATENOLOL [Concomitant]
     Indication: HYPERTENSION
     Dosage: UNK, UNKNOWN
  5. ACETAMINOPHEN (+) HYDROCODONE BITARTRATE [Concomitant]
     Indication: PRODUCT USED FOR UNKNOWN INDICATION
     Dosage: UNK, UNKNOWN
  6. HYDROCHLOROTHIAZIDE [Concomitant]
     Indication: PRODUCT USED FOR UNKNOWN INDICATION
     Dosage: 25 MG, QD

REACTIONS (1)
  - Drug ineffective [Unknown]
